FAERS Safety Report 9797562 (Version 5)
Quarter: 2016Q1

REPORT INFORMATION
  Report Type: Report from Study
  Country: CA (occurrence: CA)
  Receive Date: 20140106
  Receipt Date: 20160222
  Transmission Date: 20160526
  Serious: Yes (Hospitalization, Other)
  Sender: FDA-Public Use
  Company Number: CA-ROCHE-1187527

PATIENT
  Sex: Female
  Weight: 108.96 kg

DRUGS (23)
  1. RITUXAN [Suspect]
     Active Substance: RITUXIMAB
     Indication: SYSTEMIC LUPUS ERYTHEMATOSUS
     Dosage: MOST RECENT RITUXIMABINFUSION PRIOR TO SAE: 04/FEB/2016
     Route: 042
     Dates: start: 20111219, end: 20160204
  2. CHLOROQUINE. [Concomitant]
     Active Substance: CHLOROQUINE
  3. ADVAIR HFA [Concomitant]
     Active Substance: FLUTICASONE PROPIONATE\SALMETEROL XINAFOATE
  4. HYDROXYUREA. [Concomitant]
     Active Substance: HYDROXYUREA
  5. MONTELUKAST [Concomitant]
     Active Substance: MONTELUKAST SODIUM
  6. PANTOPRAZOLE [Concomitant]
     Active Substance: PANTOPRAZOLE SODIUM
  7. AMLODIPINE [Concomitant]
     Active Substance: AMLODIPINE BESYLATE
  8. DEXILANT [Concomitant]
     Active Substance: DEXLANSOPRAZOLE
  9. VERAPAMIL [Concomitant]
     Active Substance: VERAPAMIL HYDROCHLORIDE
  10. XARELTO [Concomitant]
     Active Substance: RIVAROXABAN
  11. RITUXAN [Suspect]
     Active Substance: RITUXIMAB
     Indication: PSORIATIC ARTHROPATHY
  12. INDAPAMIDE. [Concomitant]
     Active Substance: INDAPAMIDE
  13. ACETYLSALICYLIC ACID (ASA) [Concomitant]
  14. CYCLOBENZAPRINE [Concomitant]
     Active Substance: CYCLOBENZAPRINE
  15. PREDNISONE. [Concomitant]
     Active Substance: PREDNISONE
  16. ACTONEL [Concomitant]
     Active Substance: RISEDRONATE SODIUM
  17. D-TABS [Concomitant]
     Active Substance: CHOLECALCIFEROL
  18. PANTOLOC [Concomitant]
     Active Substance: PANTOPRAZOLE SODIUM
  19. TRAZODONE [Concomitant]
     Active Substance: TRAZODONE HYDROCHLORIDE
  20. PRISTIQ EXTENDED RELEASE [Concomitant]
     Active Substance: DESVENLAFAXINE SUCCINATE
  21. ACETAMINOPHEN. [Concomitant]
     Active Substance: ACETAMINOPHEN
     Indication: PREMEDICATION
     Route: 048
     Dates: start: 20111219, end: 20120719
  22. METHYLPREDNISOLONE. [Concomitant]
     Active Substance: METHYLPREDNISOLONE
     Indication: PREMEDICATION
     Route: 042
     Dates: start: 20111219, end: 20120719
  23. DIPHENHYDRAMINE HCL [Concomitant]
     Active Substance: DIPHENHYDRAMINE HYDROCHLORIDE
     Indication: PREMEDICATION
     Route: 048
     Dates: start: 20111219, end: 20160204

REACTIONS (8)
  - Drug hypersensitivity [Unknown]
  - Drug ineffective [Unknown]
  - Gastric disorder [Recovering/Resolving]
  - Hepatitis viral [Unknown]
  - Eye infection [Unknown]
  - Fabry^s disease [Unknown]
  - Hypertension [Unknown]
  - Off label use [Unknown]

NARRATIVE: CASE EVENT DATE: 2012
